FAERS Safety Report 18865750 (Version 1)
Quarter: 2021Q1

REPORT INFORMATION
  Report Type: Spontaneous
  Country: US (occurrence: US)
  Receive Date: 20210208
  Receipt Date: 20210208
  Transmission Date: 20210420
  Serious: No
  Sender: FDA-Public Use
  Company Number: US-GILEAD-2021-0516495

PATIENT
  Sex: Male

DRUGS (4)
  1. ENTECAVIR. [Concomitant]
     Active Substance: ENTECAVIR
  2. GENVOYA [Suspect]
     Active Substance: COBICISTAT\ELVITEGRAVIR\EMTRICITABINE\TENOFOVIR ALAFENAMIDE FUMARATE
     Indication: HIV-2 INFECTION
     Dosage: 1 DOSAGE FORM, QD
     Route: 048
  3. PREZISTA [Concomitant]
     Active Substance: DARUNAVIR ETHANOLATE
  4. ALFUZOSIN [Concomitant]
     Active Substance: ALFUZOSIN

REACTIONS (1)
  - Product dose omission issue [Unknown]
